FAERS Safety Report 20061454 (Version 1)
Quarter: 2021Q4

REPORT INFORMATION
  Report Type: Report from Study
  Country: EG (occurrence: EG)
  Receive Date: 20211112
  Receipt Date: 20211112
  Transmission Date: 20220303
  Serious: Yes (Other)
  Sender: FDA-Public Use
  Company Number: EG-NOVARTISPH-NVSC2021EG249392

PATIENT
  Sex: Male

DRUGS (5)
  1. ENTRESTO [Suspect]
     Active Substance: SACUBITRIL\VALSARTAN
     Indication: Cardiac failure
     Dosage: 50 MG, BID
     Route: 048
     Dates: start: 202109, end: 20211023
  2. BISOPROLOL FUMARATE [Concomitant]
     Active Substance: BISOPROLOL FUMARATE
     Indication: Heart rate irregular
     Dosage: 2.5 MG, QD
     Route: 048
     Dates: start: 2020
  3. CARFALONE [Concomitant]
     Indication: Heart rate irregular
     Dosage: 50 MG, QD
     Route: 048
     Dates: start: 2020
  4. BRADIPECT [Concomitant]
     Indication: Heart rate irregular
     Dosage: 7.5 MG, QD
     Route: 048
     Dates: start: 2020
  5. TORSEMIDE [Concomitant]
     Active Substance: TORSEMIDE
     Indication: Diuretic therapy
     Dosage: 20 MG, QD
     Route: 048
     Dates: start: 2020

REACTIONS (6)
  - Oedema peripheral [Recovered/Resolved]
  - Dizziness [Recovered/Resolved]
  - Fatigue [Recovered/Resolved]
  - Tachycardia [Not Recovered/Not Resolved]
  - Somnolence [Not Recovered/Not Resolved]
  - Wrong technique in product usage process [Recovered/Resolved]
